FAERS Safety Report 21561550 (Version 2)
Quarter: 2022Q4

REPORT INFORMATION
  Report Type: Spontaneous
  Country: US (occurrence: US)
  Receive Date: 20221107
  Receipt Date: 20221111
  Transmission Date: 20230113
  Serious: Yes (Death, Life-Threatening, Hospitalization, Other)
  Sender: FDA-Public Use
  Company Number: US-DSJP-DSU-2022-140014

PATIENT
  Sex: Male

DRUGS (1)
  1. ENHERTU [Suspect]
     Active Substance: FAM-TRASTUZUMAB DERUXTECAN-NXKI
     Indication: HER2 positive breast cancer
     Dosage: 5.4 MG/KG
     Route: 065
     Dates: start: 20221011, end: 20221011

REACTIONS (16)
  - Endotracheal intubation [Fatal]
  - Aspiration [Fatal]
  - Malaise [Fatal]
  - Asthenia [Fatal]
  - Hypotension [Fatal]
  - Hypoxia [Fatal]
  - Respiratory failure [Fatal]
  - Septic shock [Fatal]
  - Dyspnoea [Fatal]
  - Tachycardia [Fatal]
  - Oxygen saturation abnormal [Fatal]
  - Rales [Fatal]
  - Oedema [Fatal]
  - Liver function test increased [Fatal]
  - Metastases to liver [Fatal]
  - Pneumonia [Fatal]

NARRATIVE: CASE EVENT DATE: 20220101
